FAERS Safety Report 9376477 (Version 1)
Quarter: 2013Q3

REPORT INFORMATION
  Report Type: Spontaneous
  Country: US (occurrence: US)
  Receive Date: 20130701
  Receipt Date: 20130701
  Transmission Date: 20140515
  Serious: No
  Sender: FDA-Public Use
  Company Number: US-009507513-1306USA013804

PATIENT
  Sex: Male

DRUGS (3)
  1. COSOPT [Suspect]
     Indication: GLAUCOMA
     Dosage: 2 DROPS IN EACH EYE/ONCE DAILY
     Route: 047
     Dates: end: 20130623
  2. ALPHAGAN [Concomitant]
  3. LIPITOR [Concomitant]

REACTIONS (1)
  - Asthma [Recovering/Resolving]
